FAERS Safety Report 13666468 (Version 1)
Quarter: 2017Q2

REPORT INFORMATION
  Report Type: Spontaneous
  Country: US (occurrence: US)
  Receive Date: 20170619
  Receipt Date: 20170619
  Transmission Date: 20170830
  Serious: No
  Sender: FDA-Public Use
  Company Number: US-ROCHE-1124087

PATIENT
  Sex: Female

DRUGS (2)
  1. TAMOXIFEN [Concomitant]
     Active Substance: TAMOXIFEN
     Route: 065
  2. XELODA [Suspect]
     Active Substance: CAPECITABINE
     Indication: HEPATIC LESION
     Route: 065
     Dates: start: 201208

REACTIONS (3)
  - Fatigue [Unknown]
  - Nausea [Unknown]
  - Pain in extremity [Unknown]
